FAERS Safety Report 7575643-7 (Version None)
Quarter: 2011Q2

REPORT INFORMATION
  Report Type: 
  Country: None (occurrence: None)
  Receive Date: 20110628
  Receipt Date: 20110616
  Transmission Date: 20111010
  Serious: Yes (Hospitalization)
  Sender: FDA-Public Use
  Company Number: US-BRISTOL-MYERS SQUIBB COMPANY-15839442

PATIENT
  Age: 72 Year
  Sex: Male

DRUGS (2)
  1. COUMADIN [Suspect]
     Indication: CORONARY ARTERY BYPASS
     Dates: start: 19950101
  2. HYDROCHLOROTHIAZIDE [Suspect]

REACTIONS (2)
  - DIZZINESS POSTURAL [None]
  - HEART RATE DECREASED [None]
